FAERS Safety Report 23627916 (Version 1)
Quarter: 2024Q1

REPORT INFORMATION
  Report Type: Spontaneous
  Country: DE (occurrence: DE)
  Receive Date: 20240313
  Receipt Date: 20240313
  Transmission Date: 20240410
  Serious: Yes (Other)
  Sender: FDA-Public Use
  Company Number: DE-EMBRYOTOX-202301242

PATIENT
  Age: 1 Day
  Sex: Female
  Weight: 2.6 kg

DRUGS (3)
  1. CITALOPRAM [Suspect]
     Active Substance: CITALOPRAM HYDROBROMIDE
     Indication: Depression
     Dosage: 20 [MG/D ]
     Route: 064
     Dates: start: 20221228, end: 20230927
  2. HERBALS [Suspect]
     Active Substance: HERBALS
     Indication: Prophylaxis of neural tube defect
     Dosage: 0.5 MH/D?TAKEN BY MOTHER FROM 0. - 5.6. GESTATIONAL WEEK
     Route: 065
     Dates: start: 20221228, end: 20230207
  3. QUETIAPINE [Suspect]
     Active Substance: QUETIAPINE
     Indication: Depression
     Dosage: 100 [MG/D ]
     Route: 064
     Dates: start: 20221228, end: 20230927

REACTIONS (2)
  - Small for dates baby [Recovered/Resolved]
  - Foetal exposure during pregnancy [Unknown]

NARRATIVE: CASE EVENT DATE: 20230901
